FAERS Safety Report 10205652 (Version 1)
Quarter: 2014Q2

REPORT INFORMATION
  Report Type: Spontaneous
  Country: CA (occurrence: CA)
  Receive Date: 20140529
  Receipt Date: 20140529
  Transmission Date: 20141212
  Serious: Yes (Other)
  Sender: FDA-Public Use
  Company Number: CA-AMGEN INC.-CANSP2014038218

PATIENT
  Age: 68 Year
  Sex: Female

DRUGS (2)
  1. PROLIA [Suspect]
     Indication: OSTEOPOROSIS POSTMENOPAUSAL
     Dosage: 60 MG, UNK
     Route: 065
     Dates: start: 20140318
  2. CELEBREX [Concomitant]

REACTIONS (10)
  - Macular degeneration [Unknown]
  - Fracture [Unknown]
  - Intervertebral disc compression [Unknown]
  - Knee arthroplasty [Unknown]
  - Back pain [Unknown]
  - Impaired driving ability [Unknown]
  - Pelvic pain [Unknown]
  - Arthralgia [Unknown]
  - Gait disturbance [Unknown]
  - Post procedural complication [Unknown]
